FAERS Safety Report 9556347 (Version 1)
Quarter: 2013Q3

REPORT INFORMATION
  Report Type: Spontaneous
  Country: IQ (occurrence: IQ)
  Receive Date: 20130926
  Receipt Date: 20130926
  Transmission Date: 20140515
  Serious: Yes (Death)
  Sender: FDA-Public Use
  Company Number: IQ-JNJFOC-20130914094

PATIENT
  Age: 27 Year
  Sex: Female

DRUGS (4)
  1. TRAMAL [Suspect]
     Indication: ANALGESIC THERAPY
     Dosage: TWICE DAILY
     Route: 042
  2. FLAGYL [Suspect]
     Indication: PROPHYLAXIS
     Dosage: THRICE A DAY
     Route: 042
  3. SEFOTAK [Suspect]
     Indication: PROPHYLAXIS
     Dosage: TRICE A DAY
     Route: 042
  4. GLUCOSE W/SODIUM CHLORIDE [Concomitant]
     Indication: PRODUCT USED FOR UNKNOWN INDICATION
     Route: 042

REACTIONS (2)
  - Anaphylactic shock [Fatal]
  - Embolism [Fatal]
